FAERS Safety Report 20956202 (Version 1)
Quarter: 2022Q2

REPORT INFORMATION
  Report Type: Spontaneous
  Country: US (occurrence: None)
  Receive Date: 20220613
  Receipt Date: 20220613
  Transmission Date: 20220720
  Serious: Yes (Other)
  Sender: FDA-Public Use
  Company Number: None

PATIENT
  Age: 34 Year
  Sex: Female

DRUGS (1)
  1. BEBTELOVIMAB [Suspect]
     Active Substance: BEBTELOVIMAB

REACTIONS (7)
  - Chest discomfort [None]
  - Flushing [None]
  - Pharyngeal swelling [None]
  - Paraesthesia [None]
  - Nausea [None]
  - Infusion related reaction [None]
  - Pharyngeal paraesthesia [None]
